FAERS Safety Report 21789434 (Version 2)
Quarter: 2023Q1

REPORT INFORMATION
  Report Type: Spontaneous
  Country: JP (occurrence: JP)
  Receive Date: 20221228
  Receipt Date: 20230324
  Transmission Date: 20230418
  Serious: Yes (Other)
  Sender: FDA-Public Use
  Company Number: JP-TAKEDA-2022TUS101400

PATIENT
  Age: 5 Decade
  Sex: Female

DRUGS (2)
  1. LIALDA [Suspect]
     Active Substance: MESALAMINE
     Indication: Product used for unknown indication
     Dosage: UNK
     Route: 048
  2. URSODIOL [Concomitant]
     Active Substance: URSODIOL
     Dosage: UNK

REACTIONS (3)
  - Hypoglycaemic unconsciousness [Unknown]
  - Hypoglycaemia [Unknown]
  - Anaemia [Unknown]
